FAERS Safety Report 25223179 (Version 3)
Quarter: 2025Q3

REPORT INFORMATION
  Report Type: Spontaneous
  Country: US (occurrence: US)
  Receive Date: 20250422
  Receipt Date: 20250728
  Transmission Date: 20251021
  Serious: No
  Sender: APOTEX
  Company Number: US-APOTEX-2025AP004852

PATIENT
  Sex: Female

DRUGS (3)
  1. CYCLOSPORINE [Suspect]
     Active Substance: CYCLOSPORINE
     Indication: Product used for unknown indication
     Dosage: 2 GTT DROPS, BID (1 DROP EACH EYE EVERY 12 HOURS,)
     Route: 047
     Dates: start: 2025
  2. CYCLOSPORINE [Suspect]
     Active Substance: CYCLOSPORINE
     Dosage: 2 GTT DROPS, BID (1 DROP EACH EYE EVERY 12 HOURS,)
     Route: 047
     Dates: end: 2025
  3. CYCLOSPORINE [Suspect]
     Active Substance: CYCLOSPORINE
     Dosage: 2 GTT DROPS, BID (1 DROP EACH EYE EVERY 12 HOURS,)
     Route: 047
     Dates: end: 2025

REACTIONS (3)
  - Product dose omission issue [Unknown]
  - Eye irritation [Unknown]
  - Drug ineffective [Unknown]

NARRATIVE: CASE EVENT DATE: 20250101
